FAERS Safety Report 8890716 (Version 1)
Quarter: 2012Q4

REPORT INFORMATION
  Report Type: Report from Study
  Country: CN (occurrence: CN)
  Receive Date: 20121106
  Receipt Date: 20121106
  Transmission Date: 20130627
  Serious: Yes (Death)
  Sender: FDA-Public Use
  Company Number: CN-PFIZER INC-2012267597

PATIENT
  Age: 73 Year
  Sex: Male
  Weight: 62 kg

DRUGS (1)
  1. BOSUTINIB [Suspect]
     Indication: CHRONIC MYELOID LEUKEMIA
     Dosage: 500 mg, 1x/day
     Route: 048
     Dates: start: 20071212

REACTIONS (1)
  - Death [Fatal]
